FAERS Safety Report 19047522 (Version 3)
Quarter: 2021Q2

REPORT INFORMATION
  Report Type: Spontaneous
  Country: US (occurrence: US)
  Receive Date: 20210323
  Receipt Date: 20210407
  Transmission Date: 20210717
  Serious: Yes (Other)
  Sender: FDA-Public Use
  Company Number: US-ORGANON-O2103USA002365

PATIENT
  Age: 20 Year
  Sex: Female
  Weight: 113.38 kg

DRUGS (1)
  1. NEXPLANON [Suspect]
     Active Substance: ETONOGESTREL
     Dosage: 1 IMPLANT OF 68 MG, IN RIGHT UPPER ARM, EVERY 3 YEARS
     Route: 059
     Dates: start: 20190612, end: 20210312

REACTIONS (4)
  - Device breakage [Recovered/Resolved]
  - Complication of device removal [Recovered/Resolved]
  - No adverse event [Unknown]
  - Device dislocation [Recovered/Resolved]

NARRATIVE: CASE EVENT DATE: 20210302
